FAERS Safety Report 16395379 (Version 2)
Quarter: 2019Q3

REPORT INFORMATION
  Report Type: Spontaneous
  Country: FR (occurrence: FR)
  Receive Date: 20190605
  Receipt Date: 20190723
  Transmission Date: 20191004
  Serious: Yes (Hospitalization)
  Sender: FDA-Public Use
  Company Number: FR-ASTRAZENECA-2019SE80855

PATIENT
  Age: 3643 Week
  Sex: Female
  Weight: 52 kg

DRUGS (3)
  1. LYNPARZA [Suspect]
     Active Substance: OLAPARIB
     Indication: OVARIAN CANCER STAGE III
     Route: 048
     Dates: start: 20190128, end: 20190408
  2. LYNPARZA [Suspect]
     Active Substance: OLAPARIB
     Indication: ABDOMINAL PAIN
     Route: 048
     Dates: start: 20190128, end: 20190408
  3. INNOHEP [Concomitant]
     Active Substance: TINZAPARIN SODIUM
     Dosage: 1000IU/DAY
     Dates: start: 201709

REACTIONS (10)
  - Platelet count decreased [Recovering/Resolving]
  - Immune-mediated pneumonitis [Recovered/Resolved]
  - Leukopenia [Unknown]
  - Food aversion [Unknown]
  - Cough [Unknown]
  - Anaemia [Unknown]
  - Pyrexia [Unknown]
  - Lymphocyte count decreased [Recovering/Resolving]
  - Nausea [Unknown]
  - Vomiting [Unknown]

NARRATIVE: CASE EVENT DATE: 201903
